FAERS Safety Report 9250358 (Version 1)
Quarter: 2013Q1

REPORT INFORMATION
  Report Type: Spontaneous
  Country: US (occurrence: None)
  Receive Date: 20130305
  Receipt Date: 20130305
  Transmission Date: 20140127
  Serious: No
  Sender: FDA-Public Use
  Company Number: 163-21880-12042184

PATIENT
  Age: 63 Year
  Sex: Male

DRUGS (5)
  1. REVLIMID [Suspect]
     Indication: MYELODYSPLASTIC SYNDROME
     Route: 048
     Dates: start: 200805
  2. POTASSIUM (POTASSIUM) [Concomitant]
  3. VITAMIN D (ERGOCALCIFEROL) [Concomitant]
  4. MULIVITAMINS (MULTIVITAMINS) [Concomitant]
  5. EXORGE (AMLODIPINE W/VALSARTAN) [Concomitant]

REACTIONS (1)
  - Diarrhoea [None]
